FAERS Safety Report 6836598-3 (Version None)
Quarter: 2010Q3

REPORT INFORMATION
  Report Type: 
  Country: None (occurrence: None)
  Receive Date: 20100713
  Receipt Date: 20100701
  Transmission Date: 20110219
  Serious: Yes (Other)
  Sender: FDA-Public Use
  Company Number: PHHY2010MX43381

PATIENT
  Sex: Female

DRUGS (1)
  1. ACLASTA [Suspect]
     Dosage: 1 INJECTION (5 MG/100ML) PER YEAR

REACTIONS (6)
  - CALCIUM METABOLISM DISORDER [None]
  - DEAFNESS [None]
  - DIARRHOEA [None]
  - FEELING ABNORMAL [None]
  - STOMATITIS [None]
  - VOMITING [None]
